FAERS Safety Report 26110157 (Version 1)
Quarter: 2025Q4

REPORT INFORMATION
  Report Type: Spontaneous
  Country: EU (occurrence: EU)
  Receive Date: 20251201
  Receipt Date: 20251201
  Transmission Date: 20260117
  Serious: Yes (Other)
  Sender: BOEHRINGER INGELHEIM
  Company Number: EU-KRKA-PT2025K20673SPO

PATIENT
  Age: 62 Year
  Sex: Female

DRUGS (23)
  1. SPIRIVA [Suspect]
     Active Substance: TIOTROPIUM BROMIDE MONOHYDRATE
     Indication: Product used for unknown indication
  2. PRAMIPEXOLE DIHYDROCHLORIDE [Suspect]
     Active Substance: PRAMIPEXOLE DIHYDROCHLORIDE
     Indication: Product used for unknown indication
     Dosage: AT LUNCH
     Dates: start: 202501
  3. BENSERAZIDE HYDROCHLORIDE\LEVODOPA [Concomitant]
     Active Substance: BENSERAZIDE HYDROCHLORIDE\LEVODOPA
     Indication: Product used for unknown indication
     Dosage: 200 MG/50 MG (0.75 AT BREAKFAST, 0.5 AT LUNCH, 0.25 AT SNACK, 0.5 AT DINNER)
  4. ESOMEPRAZOLE [Concomitant]
     Active Substance: ESOMEPRAZOLE
     Indication: Product used for unknown indication
     Dosage: AT BREAKFAST
  5. LASIX [Concomitant]
     Active Substance: FUROSEMIDE
     Indication: Product used for unknown indication
     Dosage: AT BREAKFAST
  6. BILASTINE [Concomitant]
     Active Substance: BILASTINE
     Indication: Product used for unknown indication
     Dosage: AT DINNER
  7. Depakine chromosphere [Concomitant]
     Indication: Product used for unknown indication
     Dosage: AT DINNER
  8. Depakine chromosphere [Concomitant]
     Dosage: 250 MG, 2X PER DAY (1 TABLET AT BREAKFAST AND 1 TABLET AT DINNER)
  9. MONTELUKAST [Concomitant]
     Active Substance: MONTELUKAST
     Indication: Product used for unknown indication
     Dosage: AT DINNER
  10. PAROXETINE [Concomitant]
     Active Substance: PAROXETINE
     Indication: Product used for unknown indication
     Dosage: AT BREAKFAST
  11. MIRABEGRON [Concomitant]
     Active Substance: MIRABEGRON
     Indication: Product used for unknown indication
     Dosage: AT BREAKFAST
  12. RIVOTRIL [Concomitant]
     Active Substance: CLONAZEPAM
     Indication: Product used for unknown indication
     Dosage: AT DINNER
  13. CLOZAPINE [Concomitant]
     Active Substance: CLOZAPINE
     Indication: Product used for unknown indication
     Dosage: 50 MG, PER DAY (0.5 TABLET AT LUNCH AND 1.5 TABLET AT DINNER)
  14. BENSERAZIDE HYDROCHLORIDE\LEVODOPA [Concomitant]
     Active Substance: BENSERAZIDE HYDROCHLORIDE\LEVODOPA
     Indication: Product used for unknown indication
     Dosage: AT DINNER
  15. Normatal [Concomitant]
     Indication: Product used for unknown indication
     Dosage: 62.23 MG/133 MG, 2X PER DAY (1 TABLET AT BREAKFAST AND 1 TABLET AT DINNER)
  16. Aeromax [Concomitant]
     Indication: Product used for unknown indication
  17. SYMBICORT [Concomitant]
     Active Substance: BUDESONIDE\FORMOTEROL FUMARATE DIHYDRATE
     Indication: Product used for unknown indication
     Dosage: 4.5 UG
  18. Casenlax [Concomitant]
     Indication: Product used for unknown indication
     Dosage: 10 MG SACHET
  19. Prevecist [Concomitant]
     Indication: Product used for unknown indication
  20. PROPRANOLOL [Concomitant]
     Active Substance: PROPRANOLOL HYDROCHLORIDE
     Indication: Product used for unknown indication
  21. DAFALGAN [Concomitant]
     Active Substance: ACETAMINOPHEN
     Indication: Product used for unknown indication
     Dosage: 1 G
  22. Strepfen [Concomitant]
     Indication: Product used for unknown indication
  23. Nasorhinathiol [Concomitant]
     Indication: Product used for unknown indication

REACTIONS (2)
  - Hallucination, auditory [Unknown]
  - Hallucination, visual [Unknown]

NARRATIVE: CASE EVENT DATE: 20251010
